FAERS Safety Report 6618670-6 (Version None)
Quarter: 2010Q1

REPORT INFORMATION
  Report Type: 
  Country: None (occurrence: None)
  Receive Date: 20100308
  Receipt Date: 20100222
  Transmission Date: 20100710
  Serious: Yes (Hospitalization, Other)
  Sender: FDA-Public Use
  Company Number: US-ELI_LILLY_AND_COMPANY-US201002006694

PATIENT
  Sex: Female
  Weight: 45.805 kg

DRUGS (8)
  1. FORTEO [Suspect]
     Indication: OSTEOPOROSIS
     Dosage: 20 UG, DAILY (1/D)
     Dates: start: 20090901
  2. MAGNESIUM [Concomitant]
  3. TOPROL-XL [Concomitant]
  4. METFORMIN HYDROCHLORIDE [Concomitant]
  5. MAXZIDE [Concomitant]
     Indication: ECLAMPSIA
  6. VITAMINS [Concomitant]
  7. VITAMIN D [Concomitant]
     Dosage: 50000 U, 2/W
  8. CALCIUM [Concomitant]

REACTIONS (14)
  - ADVERSE DRUG REACTION [None]
  - ATRIAL FIBRILLATION [None]
  - BLOOD ZINC DECREASED [None]
  - CARDIAC DISORDER [None]
  - DIZZINESS [None]
  - DYSPNOEA [None]
  - ERYTHEMA [None]
  - LIPASE INCREASED [None]
  - LUNG DISORDER [None]
  - PANCREATIC ENZYMES INCREASED [None]
  - PARANASAL SINUS HYPERSECRETION [None]
  - PERIPHERAL VASCULAR DISORDER [None]
  - PRURITUS GENERALISED [None]
  - PULSE ABSENT [None]
